FAERS Safety Report 6683547-7 (Version None)
Quarter: 2010Q2

REPORT INFORMATION
  Report Type: 
  Country: None (occurrence: None)
  Receive Date: 20100413
  Receipt Date: 20100331
  Transmission Date: 20101027
  Serious: Yes (Life-Threatening, Hospitalization)
  Sender: FDA-Public Use
  Company Number: FR-2010-0556

PATIENT
  Age: 73 Year
  Sex: Female
  Weight: 43 kg

DRUGS (7)
  1. VINORELBINE [Suspect]
     Indication: BREAST CANCER
     Dosage: 32 MG IV
     Route: 042
     Dates: start: 20100225, end: 20100304
  2. LAPATINIB [Suspect]
     Indication: BREAST CANCER
     Dosage: 1250 MG PO
     Route: 048
     Dates: start: 20100218, end: 20100308
  3. TAREG [Concomitant]
  4. CORTANCYL. MFR: NOT SPECIFIED [Concomitant]
  5. STILNOX. MFR: NOT SPECIFIED [Concomitant]
  6. ZOMETA [Concomitant]
  7. ALPRAZOLAM [Concomitant]

REACTIONS (24)
  - BRADYCARDIA [None]
  - CHOLESTASIS [None]
  - CONFUSIONAL STATE [None]
  - CYANOSIS [None]
  - CYTOLYTIC HEPATITIS [None]
  - DEHYDRATION [None]
  - DIARRHOEA [None]
  - ESCHERICHIA URINARY TRACT INFECTION [None]
  - HEPATIC STEATOSIS [None]
  - HYPERGLYCAEMIA [None]
  - HYPERURICAEMIA [None]
  - HYPONATRAEMIA [None]
  - HYPOTHERMIA [None]
  - ISCHAEMIA [None]
  - METABOLIC ACIDOSIS [None]
  - NEUTROPENIA [None]
  - PANCREATITIS ACUTE [None]
  - PERFORMANCE STATUS DECREASED [None]
  - PLATELET COUNT DECREASED [None]
  - PLEURAL EFFUSION [None]
  - RENAL FAILURE ACUTE [None]
  - SEPTIC SHOCK [None]
  - SOMNOLENCE [None]
  - TACHYCARDIA [None]
